FAERS Safety Report 11131243 (Version 1)
Quarter: 2015Q2

REPORT INFORMATION
  Report Type: Spontaneous
  Country: IT (occurrence: IT)
  Receive Date: 20150522
  Receipt Date: 20150522
  Transmission Date: 20150821
  Serious: Yes (Other)
  Sender: FDA-Public Use
  Company Number: IT-EISAI MEDICAL RESEARCH-EC-2015-006874

PATIENT
  Age: 42 Year
  Sex: Male

DRUGS (3)
  1. PARIET [Suspect]
     Active Substance: RABEPRAZOLE SODIUM
     Indication: SELF INJURIOUS BEHAVIOUR
     Route: 048
     Dates: start: 20150515, end: 20150515
  2. DELORAZEPAM [Suspect]
     Active Substance: DELORAZEPAM
     Indication: PRODUCT USED FOR UNKNOWN INDICATION
     Route: 048
     Dates: start: 20150515, end: 20150515
  3. SEROQUEL [Suspect]
     Active Substance: QUETIAPINE FUMARATE
     Indication: PRODUCT USED FOR UNKNOWN INDICATION
     Route: 048
     Dates: start: 20150515, end: 20150515

REACTIONS (2)
  - Intentional overdose [Recovered/Resolved]
  - Self injurious behaviour [Unknown]

NARRATIVE: CASE EVENT DATE: 20150515
